FAERS Safety Report 4564028-3 (Version None)
Quarter: 2005Q1

REPORT INFORMATION
  Report Type: 
  Country: None (occurrence: None)
  Receive Date: 20050128
  Receipt Date: 20040217
  Transmission Date: 20050727
  Serious: No
  Sender: FDA-Public Use
  Company Number: US-BRISTOL-MYERS SQUIBB COMPANY-12509204

PATIENT
  Age: 80 Year
  Sex: Male
  Weight: 75 kg

DRUGS (4)
  1. CEFZIL [Suspect]
     Indication: SINUS DISORDER
     Route: 048
     Dates: start: 20040202, end: 20040201
  2. ASPIRIN [Concomitant]
  3. MULTI-VITAMIN [Concomitant]
  4. FISH OIL [Concomitant]

REACTIONS (1)
  - DRUG INEFFECTIVE [None]
